FAERS Safety Report 21832769 (Version 1)
Quarter: 2023Q1

REPORT INFORMATION
  Report Type: Spontaneous
  Country: US (occurrence: US)
  Receive Date: 20230106
  Receipt Date: 20230106
  Transmission Date: 20230418
  Serious: No
  Sender: FDA-Public Use
  Company Number: US-ALLERGAN-2237243US

PATIENT
  Sex: Female

DRUGS (1)
  1. QULIPTA [Suspect]
     Active Substance: ATOGEPANT
     Indication: Vertigo
     Dosage: UNK

REACTIONS (3)
  - Off label use [Unknown]
  - Dyspnoea [Not Recovered/Not Resolved]
  - Drug ineffective for unapproved indication [Unknown]
